FAERS Safety Report 9217490 (Version 2)
Quarter: 2013Q2

REPORT INFORMATION
  Report Type: Spontaneous
  Country: US (occurrence: US)
  Receive Date: 20130408
  Receipt Date: 20130429
  Transmission Date: 20140414
  Serious: Yes (Hospitalization)
  Sender: FDA-Public Use
  Company Number: US-ALEXION-A201300646

PATIENT
  Age: 63 Year
  Sex: Female
  Weight: 83.7 kg

DRUGS (11)
  1. SOLIRIS 300MG [Suspect]
     Indication: PAROXYSMAL NOCTURNAL HAEMOGLOBINURIA
     Dosage: 900 MG, Q2W
     Route: 042
  2. VITAMIN D3 [Concomitant]
     Dosage: 400 UNITS (1 TABLET) QD
     Route: 048
  3. VITAMIN B12 [Concomitant]
     Dosage: 1000 MCG QD
     Route: 048
  4. DESFERAL [Concomitant]
     Dosage: 8 HOUR IV AT NIGHT, QW
     Route: 042
  5. EPOGEN [Concomitant]
     Dosage: 60,000 UNITS QW
     Route: 058
  6. LEXAPRO [Concomitant]
     Dosage: 20 MG, QD
     Route: 048
  7. FLONASE [Concomitant]
     Dosage: 1 SPRAY IN BOTH NOSTRILS, QD
  8. FOLIC ACID [Concomitant]
     Dosage: 1 MG, BID
     Route: 048
  9. ARIXTRA [Concomitant]
     Dosage: 7.5 MG, QD
     Route: 058
  10. VICODIN [Concomitant]
     Indication: PAIN
     Dosage: 5-500 MG, 1-2 TABLETS Q6H PRN
     Route: 048
  11. SONATA [Concomitant]
     Indication: SLEEP DISORDER
     Dosage: 10 MG, PRN

REACTIONS (2)
  - Pyelonephritis acute [Recovering/Resolving]
  - Escherichia infection [Recovering/Resolving]
